FAERS Safety Report 18676594 (Version 1)
Quarter: 2020Q4

REPORT INFORMATION
  Report Type: Spontaneous
  Country: DE (occurrence: DE)
  Receive Date: 20201229
  Receipt Date: 20201229
  Transmission Date: 20210114
  Serious: Yes (Other)
  Sender: FDA-Public Use
  Company Number: DE-TEVA-2020-DE-1862178

PATIENT
  Age: 1 Day
  Sex: Female
  Weight: 2.61 kg

DRUGS (10)
  1. PREDNISOLON [Suspect]
     Active Substance: PREDNISOLONE
     Indication: PSORIASIS
     Dosage: 20 MILLIGRAM DAILY; 20 [MG/D ]
     Route: 064
  2. CICLOSPORIN [Suspect]
     Active Substance: CYCLOSPORINE
     Indication: PSORIASIS
     Dosage: 150 [MG/D ] 2 SEPARATED DOSES
     Route: 064
  3. THYRONAJOD [Concomitant]
     Active Substance: LEVOTHYROXINE SODIUM\POTASSIUM IODIDE
     Indication: HYPOTHYROIDISM
     Dosage: 50 [UG/D ] / 150 [UG/D ]
     Route: 064
     Dates: start: 20191004, end: 20200710
  4. PREDNITOP [PREDNICARBATE] [Suspect]
     Active Substance: PREDNICARBATE
     Indication: PSORIASIS
     Route: 064
     Dates: start: 20200218, end: 20200315
  5. LOCACORTEN [Suspect]
     Active Substance: FLUMETHASONE PIVALATE
     Indication: PSORIASIS
     Route: 064
  6. PROTAPHANE [Concomitant]
     Active Substance: INSULIN HUMAN
     Indication: GESTATIONAL DIABETES
     Dosage: 16 [I.E./D ]
     Route: 064
  7. COSENTYX [Concomitant]
     Active Substance: SECUKINUMAB
     Indication: PSORIATIC ARTHROPATHY
     Dosage: 300 [MG / D (EVERY 4 WEEKS)]
     Route: 064
     Dates: start: 20191018, end: 20191018
  8. HUMALOG [Concomitant]
     Active Substance: INSULIN LISPRO
     Indication: GESTATIONAL DIABETES
     Dosage: 30 [I.E./D (MAX., 3X10 I.E.) ]
     Route: 064
  9. KARISON [Suspect]
     Active Substance: CLOBETASOL PROPIONATE
     Indication: PSORIASIS
     Route: 064
  10. MOMEGALEN [Suspect]
     Active Substance: MOMETASONE FUROATE
     Indication: PSORIASIS
     Route: 064

REACTIONS (2)
  - Small for dates baby [Recovered/Resolved]
  - Foetal exposure during pregnancy [Unknown]

NARRATIVE: CASE EVENT DATE: 20200710
